FAERS Safety Report 7037312-1 (Version None)
Quarter: 2010Q4

REPORT INFORMATION
  Report Type: 
  Country: None (occurrence: None)
  Receive Date: 20101011
  Receipt Date: 20101004
  Transmission Date: 20110411
  Serious: Yes (Death, Other)
  Sender: FDA-Public Use
  Company Number: FR-ROCHE-731602

PATIENT

DRUGS (5)
  1. PEGINTERFERON ALFA-2A [Suspect]
     Indication: HEPATITIS C
     Dosage: IN 5 PATIENTS
     Route: 058
  2. RITUXIMAB [Suspect]
     Indication: HEPATITIS C
     Dosage: FORM: INFUSION.
     Route: 042
  3. RIBAVIRIN [Suspect]
     Indication: HEPATITIS C
     Route: 048
  4. PEG-INTRON [Suspect]
     Indication: HEPATITIS C
     Dosage: IN 88 PATIENTS
     Route: 058
  5. METHYLPREDNISOLONE [Concomitant]
     Dosage: PREMEDICATION BEFORE EVERY RITUXIMAB INFUSION
     Route: 042

REACTIONS (19)
  - ANAEMIA [None]
  - ARTHRALGIA [None]
  - CUTANEOUS SARCOIDOSIS [None]
  - DEATH [None]
  - DEPRESSION [None]
  - ERYSIPELAS [None]
  - HEPATIC CIRRHOSIS [None]
  - HEPATIC NEOPLASM MALIGNANT [None]
  - HERPES ZOSTER [None]
  - LUNG DISORDER [None]
  - NEUROPATHY PERIPHERAL [None]
  - NEUTROPENIA [None]
  - PANCYTOPENIA [None]
  - PRURITUS [None]
  - PSORIASIS [None]
  - PYREXIA [None]
  - SERUM SICKNESS [None]
  - THROMBOCYTOPENIA [None]
  - THYROID DISORDER [None]
